FAERS Safety Report 20725266 (Version 4)
Quarter: 2022Q2

REPORT INFORMATION
  Report Type: Spontaneous
  Country: RU (occurrence: None)
  Receive Date: 20220419
  Receipt Date: 20220527
  Transmission Date: 20220720
  Serious: Yes (Other)
  Sender: FDA-Public Use
  Company Number: 2022A149403

PATIENT
  Age: 3 Year
  Sex: Male
  Weight: 11 kg

DRUGS (5)
  1. PULMICORT TURBUHALER [Suspect]
     Active Substance: BUDESONIDE
     Indication: Pharyngitis
     Dosage: 0.25 MG/ML TIMES A DAY (IN THE MORNING AND IN THE EVENING)
     Route: 055
     Dates: start: 202204
  2. PULMICORT TURBUHALER [Suspect]
     Active Substance: BUDESONIDE
     Indication: Cough
     Dosage: 0.25 MG/ML TIMES A DAY (IN THE MORNING AND IN THE EVENING)
     Route: 055
     Dates: start: 202204
  3. FENOTEROL HYDROBROMIDE\IPRATROPIUM BROMIDE [Concomitant]
     Active Substance: FENOTEROL HYDROBROMIDE\IPRATROPIUM BROMIDE
     Dosage: UNKNOWN
     Route: 065
  4. ACETYLCYSTEINE [Concomitant]
     Active Substance: ACETYLCYSTEINE
     Dosage: UNKNOWN
     Route: 065
  5. MUCALTIN [Concomitant]
     Dosage: UNKNOWN
     Route: 065

REACTIONS (7)
  - Dyspnoea [Recovered/Resolved]
  - Oxygen saturation decreased [Recovered/Resolved]
  - Red blood cell sedimentation rate increased [Unknown]
  - Cough [Recovered/Resolved with Sequelae]
  - Drug ineffective [Recovered/Resolved]
  - Suspected product quality issue [Recovered/Resolved]
  - Off label use [Recovered/Resolved]
